FAERS Safety Report 4870164-4 (Version None)
Quarter: 2005Q4

REPORT INFORMATION
  Report Type: 
  Country: None (occurrence: None)
  Receive Date: 20051229
  Receipt Date: 20051229
  Transmission Date: 20060501
  Serious: Yes (Hospitalization)
  Sender: FDA-Public Use
  Company Number: None

PATIENT
  Age: 85 Year
  Sex: Male
  Weight: 83.0083 kg

DRUGS (1)
  1. TERAZOSIN     2MG [Suspect]
     Indication: BENIGN PROSTATIC HYPERPLASIA
     Dosage: 4MG  QHS   PO
     Route: 048
     Dates: start: 20050914, end: 20051008

REACTIONS (1)
  - HYPOTENSION [None]
